FAERS Safety Report 8568367 (Version 2)
Quarter: 2012Q4

REPORT INFORMATION
  Report Type: 
  Country: ES (occurrence: ES)
  Receive Date: 20120518
  Receipt Date: 20120927
  Transmission Date: 20130627
  Serious: Yes (Other)
  Sender: FDA-Public Use
  Company Number: ES-JNJFOC-20120510395

PATIENT
  Age: 63 Year
  Sex: Male
  Weight: 84 kg

DRUGS (6)
  1. STELARA [Suspect]
     Indication: PSORIASIS
     Route: 058
     Dates: start: 201204
  2. B-6 [Concomitant]
     Route: 065
  3. METFORMIN [Concomitant]
     Route: 065
  4. SIMVASTATINE [Concomitant]
     Route: 065
  5. ISONIAZID [Concomitant]
     Indication: PRODUCT USED FOR UNKNOWN INDICATION
     Route: 065
     Dates: start: 201203
  6. GLIMEPIRIDE [Concomitant]
     Route: 065

REACTIONS (4)
  - Cerebrovascular accident [Recovering/Resolving]
  - Aphasia [Recovered/Resolved]
  - Hemiparesis [Recovering/Resolving]
  - Hypertensive crisis [Recovering/Resolving]
